FAERS Safety Report 10373282 (Version 2)
Quarter: 2014Q3

REPORT INFORMATION
  Report Type: Spontaneous
  Country: US (occurrence: US)
  Receive Date: 20140808
  Receipt Date: 20140808
  Transmission Date: 20150326
  Serious: Yes (Hospitalization)
  Sender: FDA-Public Use
  Company Number: US-BRISTOL-MYERS SQUIBB COMPANY-20386645

PATIENT
  Age: 53 Year
  Sex: Female

DRUGS (2)
  1. SPRYCEL [Suspect]
     Active Substance: DASATINIB
     Indication: CHRONIC MYELOID LEUKAEMIA
     Route: 048
     Dates: start: 20130828
  2. DIFLUCAN [Suspect]
     Active Substance: FLUCONAZOLE

REACTIONS (9)
  - Headache [Unknown]
  - Hyperhidrosis [Unknown]
  - Myalgia [Unknown]
  - Bone pain [Unknown]
  - Paraesthesia [Unknown]
  - Arthralgia [Unknown]
  - Electrocardiogram QT prolonged [Recovered/Resolved]
  - Palpitations [Unknown]
  - Asthenia [Unknown]
